FAERS Safety Report 5926005-7 (Version None)
Quarter: 2008Q4

REPORT INFORMATION
  Report Type: 
  Country: None (occurrence: None)
  Receive Date: 20081021
  Receipt Date: 20081015
  Transmission Date: 20090506
  Serious: Yes (Other)
  Sender: FDA-Public Use
  Company Number: US-PFIZER INC-2008087168

PATIENT
  Age: 84 Year
  Sex: Female
  Weight: 71 kg

DRUGS (1)
  1. NORVASC [Suspect]
     Indication: HYPERTENSION
     Route: 048
     Dates: start: 20080701

REACTIONS (2)
  - CHEST DISCOMFORT [None]
  - FEELING ABNORMAL [None]
